FAERS Safety Report 6935858-5 (Version None)
Quarter: 2010Q3

REPORT INFORMATION
  Report Type: 
  Country: None (occurrence: None)
  Receive Date: 20100819
  Receipt Date: 20100819
  Transmission Date: 20110219
  Serious: Yes (Life-Threatening, Hospitalization)
  Sender: FDA-Public Use
  Company Number: None

PATIENT
  Sex: Female
  Weight: 74.03 kg

DRUGS (12)
  1. LOVENOX [Suspect]
     Indication: ORAL SURGERY
     Dosage: 80MG TWICE DAILY SUBCUTANEOUS
     Route: 058
     Dates: start: 20100711, end: 20100714
  2. COUMADIN [Suspect]
     Dosage: 4 MG (T.TH.SAT.SU) 5MG (M.W.F) SEE DOSE ORAL
     Route: 048
  3. SPIRONOLACTONE [Concomitant]
  4. AMIODARONE HCL [Concomitant]
  5. CALCIUM [Concomitant]
  6. CARVEDILOL [Concomitant]
  7. LETROZOLE [Concomitant]
  8. MULTI-VITAMIN [Concomitant]
  9. OMEPRAZOLE [Concomitant]
  10. VITAMN D3 [Concomitant]
  11. WARFARIN [Concomitant]
  12. ENOXAPARIN SODIUM [Concomitant]

REACTIONS (2)
  - HAEMORRHAGE [None]
  - TOOTH EXTRACTION [None]
